FAERS Safety Report 11534275 (Version 1)
Quarter: 2015Q3

REPORT INFORMATION
  Report Type: Spontaneous
  Country: US (occurrence: US)
  Receive Date: 20150922
  Receipt Date: 20150922
  Transmission Date: 20151125
  Serious: No
  Sender: FDA-Public Use
  Company Number: US-BEH-2015051212

PATIENT
  Age: 50 Year
  Sex: Female
  Weight: 62 kg

DRUGS (5)
  1. ALBURX [Suspect]
     Active Substance: ALBUMIN (HUMAN)
     Dates: start: 20150506, end: 20150506
  2. ALBURX [Suspect]
     Active Substance: ALBUMIN (HUMAN)
     Indication: NEUROPATHY PERIPHERAL
     Dates: start: 20150528, end: 20150528
  3. ALBURX [Suspect]
     Active Substance: ALBUMIN (HUMAN)
     Indication: FLUID REPLACEMENT
     Dosage: 90 ML/MIN
     Route: 042
     Dates: start: 20150513, end: 20150513
  4. ALBURX [Suspect]
     Active Substance: ALBUMIN (HUMAN)
     Indication: COMPLEX REGIONAL PAIN SYNDROME
     Dates: start: 20150520, end: 20150520
  5. ALBURX [Suspect]
     Active Substance: ALBUMIN (HUMAN)
     Indication: PLASMAPHERESIS
     Dosage: VOLUME EXCHANGE VIA PERIPHERAL VEIN, 5 BOTTLES; 90 ML/MIN
     Route: 042
     Dates: start: 20150513, end: 20150513

REACTIONS (2)
  - Chills [Recovered/Resolved]
  - Fatigue [Recovered/Resolved]

NARRATIVE: CASE EVENT DATE: 20150513
